FAERS Safety Report 9394493 (Version 2)
Quarter: 2013Q3

REPORT INFORMATION
  Report Type: Spontaneous
  Country: US (occurrence: US)
  Receive Date: 20130711
  Receipt Date: 20130726
  Transmission Date: 20140515
  Serious: Yes (Other)
  Sender: FDA-Public Use
  Company Number: US-JNJFOC-20130701729

PATIENT
  Sex: Female
  Weight: 93.44 kg

DRUGS (16)
  1. ANALPRAM HC [Concomitant]
     Dosage: 1-2.5%
     Route: 061
  2. ANUSOL HC [Concomitant]
     Route: 065
  3. ECOTRIN [Concomitant]
     Route: 048
  4. MULTIVITAMINS [Concomitant]
     Route: 065
  5. REMICADE [Suspect]
     Indication: COLITIS ULCERATIVE
     Dosage: 3RD INDUCTION DOSE
     Route: 042
     Dates: start: 20130701
  6. REMICADE [Suspect]
     Indication: COLITIS ULCERATIVE
     Dosage: 3RD INDUCTION DOSE
     Route: 042
     Dates: start: 20130520
  7. REMICADE [Suspect]
     Indication: COLITIS ULCERATIVE
     Route: 042
     Dates: start: 20130222
  8. LEVOTHYROXINE SODIUM [Concomitant]
     Route: 048
  9. ASPIRIN [Concomitant]
     Route: 065
  10. ZIAC [Concomitant]
     Route: 048
  11. ZYRTEC [Concomitant]
     Route: 065
  12. DIOVAN [Concomitant]
     Route: 048
  13. LIALDA [Concomitant]
     Route: 048
  14. NORVASC [Concomitant]
     Route: 048
  15. GLUCOPHAGE [Concomitant]
     Route: 065
  16. CLOTRIMAZOLE [Concomitant]
     Route: 048
     Dates: start: 20130701

REACTIONS (1)
  - Eye haemorrhage [Not Recovered/Not Resolved]
